FAERS Safety Report 13997917 (Version 1)
Quarter: 2017Q3

REPORT INFORMATION
  Report Type: Spontaneous
  Country: US (occurrence: US)
  Receive Date: 20170921
  Receipt Date: 20170921
  Transmission Date: 20171128
  Serious: No
  Sender: FDA-Public Use
  Company Number: US-SHIRE-US201722558

PATIENT

DRUGS (1)
  1. GATTEX [Suspect]
     Active Substance: TEDUGLUTIDE\WATER
     Indication: SHORT-BOWEL SYNDROME
     Dosage: 0.329
     Route: 065
     Dates: start: 20161205

REACTIONS (3)
  - Injection site erythema [Unknown]
  - Stoma site discharge [Unknown]
  - Injection site discomfort [Unknown]
